FAERS Safety Report 4486092-2 (Version None)
Quarter: 2004Q4

REPORT INFORMATION
  Report Type: 
  Country: None (occurrence: None)
  Receive Date: 20041026
  Receipt Date: 20041020
  Transmission Date: 20050328
  Serious: Yes (Other)
  Sender: FDA-Public Use
  Company Number: GB-MERCK-0410GBR00239

PATIENT
  Age: 71 Year
  Sex: Female
  Weight: 59 kg

DRUGS (5)
  1. ZETIA [Suspect]
     Indication: TYPE II HYPERLIPIDAEMIA
     Route: 048
     Dates: start: 20040514, end: 20040610
  2. PRAVASTATIN SODIUM [Concomitant]
     Indication: TYPE IIA HYPERLIPIDAEMIA
     Route: 048
     Dates: start: 20040501
  3. ASPIRIN [Concomitant]
     Route: 048
     Dates: start: 20010101
  4. IRBESARTAN [Concomitant]
     Indication: HYPERTENSION
     Route: 048
     Dates: start: 20040101
  5. NITROGLYCERIN [Concomitant]
     Indication: PAIN
     Route: 060

REACTIONS (6)
  - DIARRHOEA [None]
  - DYSGEUSIA [None]
  - FLATULENCE [None]
  - HEADACHE [None]
  - MYALGIA [None]
  - NAUSEA [None]
